FAERS Safety Report 13407237 (Version 1)
Quarter: 2017Q2

REPORT INFORMATION
  Report Type: Report from Study
  Country: IL (occurrence: IL)
  Receive Date: 20170405
  Receipt Date: 20170405
  Transmission Date: 20170830
  Serious: Yes (Death, Life-Threatening, Hospitalization)
  Sender: FDA-Public Use
  Company Number: IL-WELLSTAT THERAPEUTICS CORPORATION-1065051

PATIENT
  Age: 63 Year
  Sex: Female

DRUGS (2)
  1. XELODA [Suspect]
     Active Substance: CAPECITABINE
     Route: 065
     Dates: start: 20170302, end: 20170314
  2. VISTOGARD [Suspect]
     Active Substance: URIDINE TRIACETATE
     Indication: CHEMOTHERAPY TOXICITY ATTENUATION
     Route: 050
     Dates: start: 20170317, end: 20170322

REACTIONS (1)
  - Chemotherapy toxicity attenuation [Fatal]

NARRATIVE: CASE EVENT DATE: 20170317
